FAERS Safety Report 11632417 (Version 1)
Quarter: 2015Q4

REPORT INFORMATION
  Report Type: Spontaneous
  Country: US (occurrence: None)
  Receive Date: 20151014
  Receipt Date: 20151014
  Transmission Date: 20160304
  Serious: No
  Sender: FDA-Public Use
  Company Number: None

PATIENT
  Age: 64 Year
  Sex: Female

DRUGS (1)
  1. OMNITROPE [Suspect]
     Active Substance: SOMATROPIN
     Indication: ENDOCRINE DISORDER
     Route: 058
     Dates: start: 20150918

REACTIONS (1)
  - Contusion [None]

NARRATIVE: CASE EVENT DATE: 201510
